FAERS Safety Report 4439231-3 (Version None)
Quarter: 2004Q3

REPORT INFORMATION
  Report Type: 
  Country: None (occurrence: None)
  Receive Date: 20040728
  Receipt Date: 20040315
  Transmission Date: 20050211
  Serious: No
  Sender: FDA-Public Use
  Company Number: USA040362044

PATIENT
  Age: 21 Year
  Sex: Male

DRUGS (6)
  1. STRATTERA [Suspect]
     Indication: DISTURBANCE IN ATTENTION
     Dosage: 80 MG DAY
     Dates: start: 20030501
  2. ABILIFY [Concomitant]
  3. RISPERDAL [Concomitant]
  4. DEPAKOTE [Concomitant]
  5. COGENTIN [Concomitant]
  6. TRAZODONE [Concomitant]

REACTIONS (2)
  - HALLUCINATION, AUDITORY [None]
  - INSOMNIA [None]
